FAERS Safety Report 9509272 (Version 1)
Quarter: 2013Q1

REPORT INFORMATION
  Report Type: Spontaneous
  Country: US (occurrence: None)
  Receive Date: 20130305
  Receipt Date: 20130305
  Transmission Date: 20140127
  Serious: Yes (Life-Threatening, Other)
  Sender: FDA-Public Use
  Company Number: 163-21880-12071494

PATIENT
  Age: 79 Year
  Sex: Female

DRUGS (3)
  1. REVLIMID (LENALIDOMIDE) (CAPSULES) [Suspect]
     Indication: PLASMA CELL MYELOMA
     Dosage: 14 IN 14 D
     Route: 048
     Dates: start: 20120526
  2. VELCADE [Concomitant]
  3. DECADRON (DEXAMETHASONE) [Concomitant]

REACTIONS (3)
  - Anaemia [None]
  - Diarrhoea [None]
  - Fatigue [None]
